FAERS Safety Report 5328194-4 (Version None)
Quarter: 2007Q2

REPORT INFORMATION
  Report Type: 
  Country: None (occurrence: None)
  Receive Date: 20070515
  Receipt Date: 20070502
  Transmission Date: 20071010
  Serious: Yes (Hospitalization)
  Sender: FDA-Public Use
  Company Number: GXKR2007US04001

PATIENT
  Age: 41 Year
  Sex: Male
  Weight: 91 kg

DRUGS (4)
  1. RIBAVIRIN [Suspect]
     Dosage: 600 MG BID
  2. PEGINTERFERON ALFA-2A (PEGINTERFERON ALFA-2A) [Suspect]
     Dosage: 180 UG, QW
  3. TRUVADA/EFAVIRENZ [Suspect]
  4. RITUXIMAB (RITUXIMAB) [Concomitant]

REACTIONS (8)
  - CATHETER SITE HAEMATOMA [None]
  - COMPARTMENT SYNDROME [None]
  - DRUG INEFFECTIVE [None]
  - FACTOR VIII INHIBITION [None]
  - HAEMATOMA [None]
  - HAEMORRHAGE [None]
  - OBSTRUCTIVE AIRWAYS DISORDER [None]
  - PNEUMONIA [None]
